FAERS Safety Report 10076792 (Version 2)
Quarter: 2014Q2

REPORT INFORMATION
  Report Type: Spontaneous
  Country: US (occurrence: US)
  Receive Date: 20140414
  Receipt Date: 20140513
  Transmission Date: 20141212
  Serious: Yes (Hospitalization)
  Sender: FDA-Public Use
  Company Number: US-BRISTOL-MYERS SQUIBB COMPANY-20592796

PATIENT
  Age: 58 Year
  Sex: Male
  Weight: 133.78 kg

DRUGS (6)
  1. YERVOY [Suspect]
     Indication: METASTATIC MALIGNANT MELANOMA
     Dosage: 4 DOSES
     Route: 042
     Dates: start: 20140128, end: 20140415
  2. SIMVASTATIN [Concomitant]
  3. NOVOLOG [Concomitant]
     Dosage: SLIDING SCALE
  4. LANTUS [Concomitant]
     Dosage: 1DF=45 OR 50 UNITS NOS. IN THE EVENING
  5. LOSARTAN [Concomitant]
  6. ASA [Concomitant]

REACTIONS (1)
  - Hypopituitarism [Unknown]
